FAERS Safety Report 23046370 (Version 2)
Quarter: 2023Q4

REPORT INFORMATION
  Report Type: Report from Study
  Country: CA (occurrence: None)
  Receive Date: 20231009
  Receipt Date: 20231102
  Transmission Date: 20240110
  Serious: Yes (Death, Hospitalization, Other)
  Sender: FDA-Public Use
  Company Number: 2023A221563

PATIENT
  Sex: Female

DRUGS (3)
  1. IMFINZI [Suspect]
     Active Substance: DURVALUMAB
     Indication: Bile duct cancer
     Route: 042
     Dates: start: 20230718, end: 202309
  2. CISPLATIN [Suspect]
     Active Substance: CISPLATIN
     Route: 042
  3. GEMCITABINE [Suspect]
     Active Substance: GEMCITABINE
     Route: 042

REACTIONS (4)
  - Death [Fatal]
  - Malignant neoplasm progression [Unknown]
  - Intestinal perforation [Unknown]
  - Enterocutaneous fistula [Unknown]
